FAERS Safety Report 4821002-7 (Version None)
Quarter: 2005Q4

REPORT INFORMATION
  Report Type: 
  Country: None (occurrence: None)
  Receive Date: 20051104
  Receipt Date: 20050321
  Transmission Date: 20060501
  Serious: Yes (Life-Threatening, Other)
  Sender: FDA-Public Use
  Company Number: US-SANOFI-SYNTHELABO-A03200500773

PATIENT
  Sex: Male
  Weight: 77.1 kg

DRUGS (1)
  1. AMBIEN [Suspect]
     Indication: INSOMNIA
     Route: 048
     Dates: start: 20050221, end: 20050221

REACTIONS (10)
  - AMNESIA [None]
  - CARDIAC ARREST [None]
  - CONVULSION [None]
  - DYSKINESIA [None]
  - EMOTIONAL DISTRESS [None]
  - FALL [None]
  - HALLUCINATION, VISUAL [None]
  - HEADACHE [None]
  - HEART RATE INCREASED [None]
  - LOSS OF CONSCIOUSNESS [None]
